FAERS Safety Report 7984316-8 (Version None)
Quarter: 2011Q4

REPORT INFORMATION
  Report Type: 
  Country: None (occurrence: None)
  Receive Date: 20111214
  Receipt Date: 20111130
  Transmission Date: 20120403
  Serious: Yes (Death)
  Sender: FDA-Public Use
  Company Number: 1000022234

PATIENT
  Age: 23 Year
  Sex: Female

DRUGS (8)
  1. CITALOPRAM HYDROBROMIDE [Suspect]
     Dosage: 2 DOSAGE FORM (2 DOSAGE FORMS, 1 IN 1 D), ORAL, (84 DOSAGE FORMS, ONCE), ORAL
     Route: 048
     Dates: start: 20080901
  2. CITALOPRAM HYDROBROMIDE [Suspect]
     Dosage: 2 DOSAGE FORM (2 DOSAGE FORMS, 1 IN 1 D), ORAL, (84 DOSAGE FORMS, ONCE), ORAL
     Route: 048
     Dates: start: 20081106, end: 20081106
  3. LITHIUM CARBONATE [Suspect]
     Indication: DEPRESSION
     Dosage: ORAL, (78000 MG, ONCE), ORAL
     Dates: start: 20081113, end: 20081113
  4. LITHIUM CARBONATE [Suspect]
     Indication: DEPRESSION
     Dosage: ORAL, (78000 MG, ONCE), ORAL
     Dates: start: 20080901
  5. TRANXENE [Suspect]
     Indication: DEPRESSION
     Dosage: 20 MG (20 MG, 1 IN 1 D), (650 MG, ONCE)
     Dates: start: 20081015, end: 20081015
  6. TRANXENE [Suspect]
     Indication: DEPRESSION
     Dosage: 20 MG (20 MG, 1 IN 1 D), (650 MG, ONCE)
     Dates: start: 20080601
  7. TERCIAN (CYAMEMAZINE) [Suspect]
     Indication: DEPRESSION
     Dosage: , (80 DOSAGE FORMS, ONCE)
     Dates: start: 20080901
  8. TERCIAN (CYAMEMAZINE) [Suspect]
     Indication: DEPRESSION
     Dosage: , (80 DOSAGE FORMS, ONCE)
     Dates: start: 20081112, end: 20081113

REACTIONS (9)
  - EUPHORIC MOOD [None]
  - ANXIETY [None]
  - INCORRECT DOSE ADMINISTERED [None]
  - COMPLETED SUICIDE [None]
  - MALAISE [None]
  - NO THERAPEUTIC RESPONSE [None]
  - COMA [None]
  - MEDICATION ERROR [None]
  - DISCOMFORT [None]
